FAERS Safety Report 14675771 (Version 1)
Quarter: 2018Q1

REPORT INFORMATION
  Report Type: Spontaneous
  Country: US (occurrence: US)
  Receive Date: 20180323
  Receipt Date: 20180323
  Transmission Date: 20180509
  Serious: Yes (Hospitalization, Other)
  Sender: FDA-Public Use
  Company Number: US-TEVA-2018-US-873809

PATIENT
  Age: 38 Year
  Sex: Female

DRUGS (1)
  1. LOESTRIN NOS [Suspect]
     Active Substance: ETHINYL ESTRADIOL\NORETHINDRONE ACETATE
     Indication: CONTRACEPTION
     Dosage: DURATION OF USE: A FEW MONTHS OFF AND ON, DOSE: 24 FE DAILY QHS
     Route: 048
     Dates: start: 201008, end: 201011

REACTIONS (12)
  - Thrombosis [Recovered/Resolved]
  - Thirst [Unknown]
  - Malaise [Unknown]
  - Dizziness [Unknown]
  - Limb discomfort [Unknown]
  - Feeling abnormal [Unknown]
  - Hernia repair [Recovered/Resolved]
  - Abdominal discomfort [Unknown]
  - Hypertension [Unknown]
  - Asthenia [Unknown]
  - Drain removal [Recovered/Resolved]
  - Nausea [Unknown]

NARRATIVE: CASE EVENT DATE: 201009
